FAERS Safety Report 17074183 (Version 1)
Quarter: 2019Q4

REPORT INFORMATION
  Report Type: Spontaneous
  Country: ES (occurrence: ES)
  Receive Date: 20191126
  Receipt Date: 20191126
  Transmission Date: 20200122
  Serious: Yes (Hospitalization)
  Sender: FDA-Public Use
  Company Number: ES-TEVA-2019-ES-1140871

PATIENT
  Age: 64 Year
  Sex: Male

DRUGS (2)
  1. MICOFENOLATO DE MOFETILO (7330LM) [Suspect]
     Active Substance: MYCOPHENOLATE MOFETIL
     Indication: SARCOIDOSIS
     Dosage: 1000 MG PER 12 HOURS
     Route: 048
     Dates: start: 20180612, end: 20191025
  2. IMUREL 50 MG COMPRIMIDOS RECUBIERTOS CON PELICULA [Concomitant]
     Indication: SARCOIDOSIS
     Dosage: 50 MG PER 12 HOURS
     Route: 048
     Dates: start: 20160404, end: 20180611

REACTIONS (1)
  - Diffuse large B-cell lymphoma [Unknown]

NARRATIVE: CASE EVENT DATE: 20190926
